FAERS Safety Report 9674613 (Version 3)
Quarter: 2014Q1

REPORT INFORMATION
  Report Type: Spontaneous
  Country: US (occurrence: US)
  Receive Date: 20131107
  Receipt Date: 20140115
  Transmission Date: 20141002
  Serious: No
  Sender: FDA-Public Use
  Company Number: US-009507513-1310USA010407

PATIENT
  Age: 38 Year
  Sex: Female

DRUGS (3)
  1. FOLLISTIM AQ [Suspect]
     Indication: INFERTILITY
     Dosage: 75 IU, UNK (FOLLISTIM AQ 600UNT/0.72 ML)
     Route: 058
     Dates: start: 20131021, end: 20131021
  2. FOLLISTIM AQ [Suspect]
     Dosage: 75 IU, UNK
     Route: 058
     Dates: start: 20131021, end: 20131021
  3. SYNTHROID [Concomitant]

REACTIONS (6)
  - Anaphylactic reaction [Recovering/Resolving]
  - Injection site swelling [Recovering/Resolving]
  - Injection site pain [Recovering/Resolving]
  - Headache [Recovering/Resolving]
  - Lip swelling [Recovering/Resolving]
  - Swelling face [Recovering/Resolving]
